FAERS Safety Report 9491439 (Version 1)
Quarter: 2013Q1

REPORT INFORMATION
  Report Type: Not Available
  Country: US (occurrence: US)
  Receive Date: 20120619
  Receipt Date: 20120619
  Transmission Date: 20140127
  Serious: No
  Sender: FDA-Public Use
  Company Number: US-LUNDBECK-DKLU1076414

PATIENT
  Age: 3 None
  Sex: Female

DRUGS (7)
  1. ONFI [Suspect]
     Indication: PRODUCT USED FOR UNKNOWN INDICATION
     Dates: start: 20120109, end: 20120119
  2. KLONOPIN [Concomitant]
     Indication: PRODUCT USED FOR UNKNOWN INDICATION
     Dates: end: 20120109
  3. KLONOPIN [Concomitant]
     Dates: end: 20120109
  4. KLONOPIN [Concomitant]
     Dates: end: 20120109
  5. KLONOPIN [Concomitant]
     Dates: start: 20120119
  6. KLONOPIN [Concomitant]
     Dates: start: 20120119
  7. KLONOPIN [Concomitant]
     Dates: start: 20120119

REACTIONS (2)
  - Muscle twitching [Recovered/Resolved]
  - Irritability [Recovered/Resolved]
